FAERS Safety Report 5577175-4 (Version None)
Quarter: 2007Q4

REPORT INFORMATION
  Report Type: 
  Country: None (occurrence: None)
  Receive Date: 20071130
  Receipt Date: 20070912
  Transmission Date: 20080405
  Serious: No
  Sender: FDA-Public Use
  Company Number: US200709002615

PATIENT
  Age: 85 Year
  Sex: Male

DRUGS (5)
  1. BYETTA [Suspect]
     Indication: TYPE 2 DIABETES MELLITUS
     Dosage: 10 UG, 2/D, SUBCUTANEOUS
     Route: 058
     Dates: start: 20060101
  2. GLUCOTROL [Concomitant]
  3. TOPROL-XL [Concomitant]
  4. VASOTEC [Concomitant]
  5. NORVASC [Concomitant]

REACTIONS (2)
  - IRRITABILITY [None]
  - MOOD SWINGS [None]
